FAERS Safety Report 11966679 (Version 3)
Quarter: 2018Q4

REPORT INFORMATION
  Report Type: Spontaneous
  Country: US (occurrence: US)
  Receive Date: 20160127
  Receipt Date: 20181221
  Transmission Date: 20190204
  Serious: Yes (Death, Other)
  Sender: FDA-Public Use
  Company Number: US-RETROPHIN, INC.-2015RTN00007

PATIENT
  Age: 19 Year
  Sex: Male

DRUGS (4)
  1. CHOLIC ACID [Suspect]
     Active Substance: CHOLIC ACID
     Indication: ADRENOLEUKODYSTROPHY
     Dosage: 300 MG, 1X/DAY (15 MG/KG/DAY)
     Dates: end: 2015
  2. CHOLIC ACID [Suspect]
     Active Substance: CHOLIC ACID
     Indication: CEREBROHEPATORENAL SYNDROME
     Dosage: 135 MG, 1X/DAY (10 MG/KG/DAY)
     Dates: start: 1997
  3. CHOLBAM [Suspect]
     Active Substance: CHOLIC ACID
     Indication: CEREBROHEPATORENAL SYNDROME
     Dosage: UNK
     Dates: start: 20150430, end: 2015
  4. CHOLBAM [Suspect]
     Active Substance: CHOLIC ACID
     Indication: ADRENOLEUKODYSTROPHY

REACTIONS (2)
  - Hepatocellular carcinoma [Fatal]
  - Portal hypertensive gastropathy [Not Recovered/Not Resolved]

NARRATIVE: CASE EVENT DATE: 201510
